FAERS Safety Report 10881357 (Version 2)
Quarter: 2015Q2

REPORT INFORMATION
  Report Type: Spontaneous
  Country: US (occurrence: US)
  Receive Date: 20150303
  Receipt Date: 20150610
  Transmission Date: 20150821
  Serious: Yes (Hospitalization)
  Sender: FDA-Public Use
  Company Number: US-BAYER-2015-031721

PATIENT
  Age: 21 Year
  Sex: Female
  Weight: 86 kg

DRUGS (1)
  1. MIRENA [Suspect]
     Active Substance: LEVONORGESTREL
     Indication: CONTRACEPTION
     Dosage: 20 MCG/24HR, CONT
     Route: 015
     Dates: start: 201106, end: 20130215

REACTIONS (6)
  - Device issue [None]
  - Pain [None]
  - Injury [None]
  - Emotional distress [None]
  - Depression [None]
  - Embedded device [None]

NARRATIVE: CASE EVENT DATE: 201206
